FAERS Safety Report 8237324-6 (Version None)
Quarter: 2012Q1

REPORT INFORMATION
  Report Type: 
  Country: None (occurrence: None)
  Receive Date: 20120309
  Receipt Date: 20101201
  Transmission Date: 20120608
  Serious: Yes (Hospitalization)
  Sender: FDA-Public Use
  Company Number: PHHY2010US52336

PATIENT
  Age: 39 Year
  Sex: Male

DRUGS (4)
  1. COUMADIN [Concomitant]
  2. EXTAVIA [Suspect]
     Indication: MULTIPLE SCLEROSIS
     Dosage: 0.25 MG, QOD, SUBCUTANEOUS
     Route: 058
     Dates: start: 20100616
  3. ACETAMINOPHEN [Concomitant]
  4. IBUPROFEN [Concomitant]

REACTIONS (8)
  - KIDNEY INFECTION [None]
  - CYSTITIS [None]
  - DRUG DOSE OMISSION [None]
  - PAIN IN EXTREMITY [None]
  - INJECTION SITE HAEMATOMA [None]
  - PYREXIA [None]
  - LIMB DISCOMFORT [None]
  - MUSCLE SPASMS [None]
